FAERS Safety Report 17705293 (Version 1)
Quarter: 2020Q2

REPORT INFORMATION
  Report Type: Spontaneous
  Country: CN (occurrence: CN)
  Receive Date: 20200424
  Receipt Date: 20200424
  Transmission Date: 20200714
  Serious: Yes (Death, Hospitalization)
  Sender: FDA-Public Use
  Company Number: CN-SGP-000016

PATIENT
  Age: 51 Year

DRUGS (4)
  1. METHYLPREDNISOLONE. [Suspect]
     Active Substance: METHYLPREDNISOLONE
     Indication: CORONAVIRUS INFECTION
     Dosage: 40MG DAILY
     Route: 065
  2. CICLOSPORIN [Suspect]
     Active Substance: CYCLOSPORINE
     Indication: PROPHYLAXIS AGAINST TRANSPLANT REJECTION
     Route: 065
  3. LOPINAVIR,RITONAVIR [Suspect]
     Active Substance: LOPINAVIR\RITONAVIR
     Indication: CORONAVIRUS INFECTION
     Dosage: 200 MG THRICE DAILY, ORALLY
     Route: 048
  4. IMMUNOGLOBULINS NOS [Suspect]
     Active Substance: IMMUNE GLOBULIN NOS
     Indication: CORONAVIRUS INFECTION
     Dosage: 10G DAILY
     Route: 065

REACTIONS (5)
  - Product use in unapproved indication [Unknown]
  - Coronavirus infection [Fatal]
  - Respiratory failure [Unknown]
  - Nosocomial infection [Unknown]
  - Condition aggravated [Fatal]

NARRATIVE: CASE EVENT DATE: 20200214
